FAERS Safety Report 16934764 (Version 3)
Quarter: 2019Q4

REPORT INFORMATION
  Report Type: Spontaneous
  Country: US (occurrence: US)
  Receive Date: 20191018
  Receipt Date: 20191213
  Transmission Date: 20200122
  Serious: Yes (Hospitalization, Other)
  Sender: FDA-Public Use
  Company Number: US-CATALYST PHARMACEUTICALS, INC-2019CAT00487

PATIENT
  Age: 79 Year
  Sex: Male
  Weight: 74.83 kg

DRUGS (12)
  1. IVIG [Suspect]
     Active Substance: HUMAN IMMUNOGLOBULIN G
     Dosage: EVERY 4 TO 6 WEEKS
     Route: 042
     Dates: start: 2019
  2. ATORVASTATIN [Concomitant]
     Active Substance: ATORVASTATIN
     Dosage: 5 UNK, 1X/DAY
  3. ELIQUIS [Concomitant]
     Active Substance: APIXABAN
     Dosage: 5 MG, 2X/DAY
  4. SIMETHICONE (DIMETHICONE) [Concomitant]
     Active Substance: DIMETHICONE
     Dosage: 80 MG, UP TO 4X/DAY AS NEEDED
  5. OMEPRAZOLE. [Concomitant]
     Active Substance: OMEPRAZOLE
     Dosage: 200 MG, 1X/DAY
  6. LOSARTAN. [Concomitant]
     Active Substance: LOSARTAN
     Dosage: 25 MG, 1X/DAY
  7. IVIG [Suspect]
     Active Substance: HUMAN IMMUNOGLOBULIN G
     Indication: MYASTHENIC SYNDROME
     Dosage: EVERY 6 WEEKS
     Route: 042
     Dates: start: 2019, end: 2019
  8. FIRDAPSE [Suspect]
     Active Substance: AMIFAMPRIDINE
     Dosage: 15 MG, 4X/DAY
     Route: 048
     Dates: start: 2019
  9. ONDANSETRON [Concomitant]
     Active Substance: ONDANSETRON
     Dosage: UNK, AS NEEDED
  10. OMEPRAZOLE. [Concomitant]
     Active Substance: OMEPRAZOLE
     Dosage: 200 MG, 1X/DAY
  11. LACTULOSE. [Concomitant]
     Active Substance: LACTULOSE
     Dosage: 20 UNK, 3X/DAY
  12. FIRDAPSE [Suspect]
     Active Substance: AMIFAMPRIDINE
     Indication: MYASTHENIC SYNDROME
     Dosage: 20 MG, 4X/DAY
     Route: 048
     Dates: start: 2019, end: 2019

REACTIONS (9)
  - Sepsis [Recovered/Resolved]
  - Drug ineffective [Not Recovered/Not Resolved]
  - Asthenia [Not Recovered/Not Resolved]
  - Constipation [Unknown]
  - Nausea [Unknown]
  - Intraductal papillary mucinous neoplasm [Not Recovered/Not Resolved]
  - Weight decreased [Recovering/Resolving]
  - Pleural effusion [Unknown]
  - Cholecystitis acute [Unknown]

NARRATIVE: CASE EVENT DATE: 2019
